FAERS Safety Report 6700774-0 (Version None)
Quarter: 2010Q2

REPORT INFORMATION
  Report Type: 
  Country: None (occurrence: None)
  Receive Date: 20100428
  Receipt Date: 20100415
  Transmission Date: 20101027
  Serious: Yes (Hospitalization, Other)
  Sender: FDA-Public Use
  Company Number: US-ELI_LILLY_AND_COMPANY-US201003005377

PATIENT
  Sex: Male

DRUGS (21)
  1. BYETTA [Suspect]
     Indication: TYPE 2 DIABETES MELLITUS
     Dosage: 10 UG, 2/D
     Route: 058
     Dates: start: 20100205
  2. CRESTOR [Concomitant]
     Dosage: 20 MG, DAILY (1/D)
     Route: 048
  3. PROMETHAZINE HCL [Concomitant]
     Indication: NAUSEA
     Dosage: 25 MG, AS NEEDED
  4. ACIPHEX [Concomitant]
     Dosage: 20 MG, 2/D
     Route: 048
  5. GLYBURIDE [Concomitant]
     Dosage: 1.25 MG, 2/D
     Route: 048
  6. KLONOPIN [Concomitant]
     Dosage: 1 MG, EACH EVENING
     Dates: start: 20070501
  7. KLONOPIN [Concomitant]
     Dosage: 1 MG, 2/D
  8. ALTACE [Concomitant]
     Dosage: 10 MG, 2/D
  9. SYNTHROID [Concomitant]
     Dosage: 50 UG, DAILY (1/D)
  10. SYNTHROID [Concomitant]
     Dosage: 75 UG, DAILY (1/D)
  11. HYDROCHLOROTHIAZIDE [Concomitant]
     Dosage: 25 MG, EACH MORNING
  12. TRICOR [Concomitant]
     Dosage: 145 MG, DAILY (1/D)
  13. DARVOCET [Concomitant]
     Dosage: UNK D/F, OTHER
  14. TESTOSTERONE [Concomitant]
     Dosage: 200 D/F, MONTHLY (1/M)
     Route: 030
  15. NIASPAN [Concomitant]
     Dosage: 1000 MG, 2/D
  16. NITROGLYCERIN [Concomitant]
     Indication: CHEST PAIN
     Dosage: 0.4 MG, AS NEEDED
     Route: 060
  17. EFFEXOR XR [Concomitant]
     Dosage: 75 MG, 2/D
  18. XOPENEX [Concomitant]
     Dosage: UNK D/F, EVERY 6 HRS
  19. JANUVIA [Concomitant]
     Dosage: 100 MG, DAILY (1/D)
  20. VICODIN [Concomitant]
     Dosage: UNK D/F, AS NEEDED
  21. ASPIRIN [Concomitant]
     Dosage: 81 MG, DAILY (1/D)

REACTIONS (4)
  - HYPERTENSION [None]
  - HYPOGLYCAEMIA [None]
  - INJECTION SITE PAIN [None]
  - STRESS [None]
